FAERS Safety Report 4691295-8 (Version None)
Quarter: 2005Q2

REPORT INFORMATION
  Report Type: 
  Country: None (occurrence: None)
  Receive Date: 20050610
  Receipt Date: 20050603
  Transmission Date: 20051028
  Serious: Yes (Death)
  Sender: FDA-Public Use
  Company Number: 163-20785-05050085

PATIENT
  Age: 81 Year
  Sex: Male

DRUGS (2)
  1. THALOMID [Suspect]
     Indication: MYELODYSPLASTIC SYNDROME
     Dosage: SEE IMAGE
     Route: 048
     Dates: start: 20020410, end: 20020101
  2. THALOMID [Suspect]
     Indication: MYELODYSPLASTIC SYNDROME
     Dosage: SEE IMAGE
     Route: 048
     Dates: start: 20020628, end: 20050101

REACTIONS (2)
  - CARDIAC DEATH [None]
  - DISEASE PROGRESSION [None]
